FAERS Safety Report 6544902 (Version 2)
Quarter: 2014Q3

REPORT INFORMATION
  Report Type: Spontaneous
  Country: US (occurrence: US)
  Receive Date: 20080206
  Receipt Date: 20140728
  Transmission Date: 20150326
  Serious: Yes (Other)
  Sender: FDA-Public Use
  Company Number: US-RANBAXY-2008US-12830

PATIENT

DRUGS (15)
  1. PREDNISOLONE. [Concomitant]
     Active Substance: PREDNISOLONE
     Dosage: 10 MG, UNK
  2. NORCO [Concomitant]
     Active Substance: ACETAMINOPHEN\HYDROCODONE BITARTRATE
  3. CLONIDINE. [Concomitant]
     Active Substance: CLONIDINE
  4. NASONEX [Concomitant]
     Active Substance: MOMETASONE FUROATE
  5. AMBIEN [Concomitant]
     Active Substance: ZOLPIDEM TARTRATE
     Dosage: 10 MG, UNK
  6. PROZAC [Concomitant]
     Active Substance: FLUOXETINE HYDROCHLORIDE
     Dosage: 20 MG, QD
  7. CLINDAMYCIN HYDROCHLORIDE. [Suspect]
     Active Substance: CLINDAMYCIN HYDROCHLORIDE
     Indication: DENTAL OPERATION
     Dosage: 300 MG, QID
     Dates: start: 20080123
  8. AMLODEPINE [Concomitant]
     Dosage: 5 MG, QD
  9. PRODOLEC [Concomitant]
     Dosage: 20 MG, QD
  10. OXYCODON [Concomitant]
     Active Substance: OXYCODONE
  11. XOPENEX [Concomitant]
     Active Substance: LEVALBUTEROL HYDROCHLORIDE
     Dosage: 1.25 MG, UNK
  12. ASACOL [Concomitant]
     Active Substance: MESALAMINE
     Dosage: 400 MG, BID
  13. HYDROCHLOTHIAZIDE [Concomitant]
     Dosage: 25 MG, QD
  14. CLONOZEPAM [Concomitant]
  15. PIAZOLAN [Concomitant]
     Dosage: 1 MG, UNK

REACTIONS (5)
  - Pain [Recovering/Resolving]
  - Paralysis [Recovering/Resolving]
  - Arthralgia [Recovering/Resolving]
  - Chills [Recovering/Resolving]
  - Hyperhidrosis [Recovering/Resolving]
